FAERS Safety Report 6415853-5 (Version None)
Quarter: 2009Q4

REPORT INFORMATION
  Report Type: 
  Country: None (occurrence: None)
  Receive Date: 20091027
  Receipt Date: 20091017
  Transmission Date: 20100525
  Serious: Yes (Hospitalization)
  Sender: FDA-Public Use
  Company Number: US-CELGENEUS-163-21880-09101435

PATIENT
  Sex: Male
  Weight: 95.113 kg

DRUGS (8)
  1. REVLIMID [Suspect]
     Indication: LYMPHOMA
     Route: 048
     Dates: start: 20090715, end: 20091016
  2. RITUXIMAB [Suspect]
     Indication: LYMPHOMA
     Route: 051
     Dates: start: 20090914, end: 20091005
  3. DECADRON [Suspect]
     Indication: LYMPHOMA
     Route: 065
     Dates: start: 20090715
  4. DILTIAZEM [Concomitant]
     Indication: DRUG USE FOR UNKNOWN INDICATION
     Route: 065
  5. WARFARIN SODIUM [Concomitant]
     Indication: DRUG USE FOR UNKNOWN INDICATION
     Route: 065
  6. TRIAMTERENE AND HYDROCHLOROTHIAZIDE [Concomitant]
     Indication: DRUG USE FOR UNKNOWN INDICATION
     Dosage: 37.5/25 MG
     Route: 065
  7. ADVIL [Concomitant]
     Indication: DRUG USE FOR UNKNOWN INDICATION
     Route: 065
  8. KLOR-CON M20 [Concomitant]
     Indication: DRUG USE FOR UNKNOWN INDICATION
     Route: 065

REACTIONS (5)
  - DYSPNOEA [None]
  - LUNG NEOPLASM [None]
  - MALAISE [None]
  - PYREXIA [None]
  - WEIGHT DECREASED [None]
